FAERS Safety Report 10641276 (Version 1)
Quarter: 2014Q4

REPORT INFORMATION
  Report Type: Spontaneous
  Country: CZ (occurrence: None)
  Receive Date: 20141208
  Receipt Date: 20141208
  Transmission Date: 20150529
  Serious: Yes (Hospitalization)
  Sender: FDA-Public Use
  Company Number: 2014SA113201

PATIENT
  Age: 30 Year
  Sex: Male

DRUGS (22)
  1. NOVALGIN [Concomitant]
     Active Substance: METAMIZOLE SODIUM
  2. VITAMIN K [Concomitant]
     Active Substance: PHYTONADIONE
  3. ITOPRIDE [Concomitant]
     Active Substance: ITOPRIDE
  4. BISEPTOL [Concomitant]
     Active Substance: SULFAMETHOXAZOLE\TRIMETHOPRIM
  5. PARACETAMOL [Concomitant]
     Active Substance: ACETAMINOPHEN
  6. NADROPARIN [Concomitant]
     Active Substance: NADROPARIN
  7. ACIDUM FOLICUM [Concomitant]
     Active Substance: FOLIC ACID
  8. OMEPRAZOLE. [Concomitant]
     Active Substance: OMEPRAZOLE
  9. REBIF [Concomitant]
     Active Substance: INTERFERON BETA-1A
  10. GILENYA [Concomitant]
     Active Substance: FINGOLIMOD HYDROCHLORIDE
  11. NEODOLPASSE [Concomitant]
  12. DIAZEPAM. [Concomitant]
     Active Substance: DIAZEPAM
  13. ZOVIRAX [Concomitant]
     Active Substance: ACYCLOVIR
  14. FLECTOR [Concomitant]
     Active Substance: DICLOFENAC EPOLAMINE
  15. MITOXANTRONE [Concomitant]
     Active Substance: MITOXANTRONE HYDROCHLORIDE
  16. LEMTRADA [Suspect]
     Active Substance: ALEMTUZUMAB
     Indication: MULTIPLE SCLEROSIS
     Dates: start: 20140811, end: 20140815
  17. DEGAN [Concomitant]
     Active Substance: METOCLOPRAMIDE HYDROCHLORIDE
  18. FLUCONAZOLE. [Concomitant]
     Active Substance: FLUCONAZOLE
  19. MEROPENEM. [Concomitant]
     Active Substance: MEROPENEM
  20. KALNORMIN [Concomitant]
     Active Substance: POTASSIUM CHLORIDE
  21. AKTIFERRIN [Concomitant]
     Active Substance: FERROUS SULFATE\SERINE
  22. TYSABRI [Concomitant]
     Active Substance: NATALIZUMAB

REACTIONS (7)
  - Encephalitis [None]
  - Lymphopenia [None]
  - Dermatitis allergic [None]
  - Face oedema [None]
  - Hemiparesis [None]
  - Listeriosis [None]
  - Arthralgia [None]

NARRATIVE: CASE EVENT DATE: 20140819
